FAERS Safety Report 19467170 (Version 1)
Quarter: 2021Q2

REPORT INFORMATION
  Report Type: Spontaneous
  Country: US (occurrence: US)
  Receive Date: 20210625
  Receipt Date: 20210625
  Transmission Date: 20210717
  Serious: Yes (Hospitalization)
  Sender: FDA-Public Use
  Company Number: None

PATIENT
  Age: 66 Year
  Sex: Male

DRUGS (11)
  1. DAPSONE. [Concomitant]
     Active Substance: DAPSONE
  2. GINGKO [Concomitant]
     Active Substance: GINKGO
  3. LEVOTHYROXIN [Concomitant]
     Active Substance: LEVOTHYROXINE
  4. TALTZ [Suspect]
     Active Substance: IXEKIZUMAB
     Indication: PSORIASIS
     Route: 058
     Dates: start: 20180905
  5. CARVEDILOL. [Concomitant]
     Active Substance: CARVEDILOL
  6. LOSARTAN POT [Concomitant]
     Active Substance: LOSARTAN POTASSIUM
  7. TAMSULOSIN [Concomitant]
     Active Substance: TAMSULOSIN
  8. VANCOMYCIN [Concomitant]
     Active Substance: VANCOMYCIN
  9. VIT PHOS [Concomitant]
  10. PANTOPRAZOLE [Concomitant]
     Active Substance: PANTOPRAZOLE
  11. FAMOTIDINE. [Concomitant]
     Active Substance: FAMOTIDINE

REACTIONS (2)
  - Renal transplant [None]
  - Therapy interrupted [None]

NARRATIVE: CASE EVENT DATE: 20210426
